FAERS Safety Report 12458193 (Version 1)
Quarter: 2016Q2

REPORT INFORMATION
  Report Type: Spontaneous
  Country: US (occurrence: US)
  Receive Date: 20160613
  Receipt Date: 20160613
  Transmission Date: 20160815
  Serious: Yes (Death, Hospitalization, Other)
  Sender: FDA-Public Use
  Company Number: US-CIPLA LTD.-2016US06612

PATIENT

DRUGS (1)
  1. WARFARIN [Suspect]
     Active Substance: WARFARIN
     Dosage: UNK
     Route: 065

REACTIONS (8)
  - Calciphylaxis [Not Recovered/Not Resolved]
  - International normalised ratio increased [Unknown]
  - Sepsis [Fatal]
  - Ischaemia [Unknown]
  - Blister [Unknown]
  - Skin ulcer [Not Recovered/Not Resolved]
  - International normalised ratio fluctuation [Unknown]
  - Stenotrophomonas infection [Unknown]
